FAERS Safety Report 7201956-4 (Version None)
Quarter: 2010Q4

REPORT INFORMATION
  Report Type: 
  Country: None (occurrence: None)
  Receive Date: 20101215
  Receipt Date: 20101209
  Transmission Date: 20110411
  Serious: Yes (Other)
  Sender: FDA-Public Use
  Company Number: 20108617

PATIENT
  Sex: Female

DRUGS (1)
  1. LIORESAL [Suspect]
     Indication: MUSCLE SPASTICITY
     Dosage: 110 MCG, DAILY, INTRATHECAL
     Route: 037

REACTIONS (3)
  - DEVICE LEAKAGE [None]
  - DEVICE OCCLUSION [None]
  - MUSCLE SPASMS [None]
